FAERS Safety Report 16543388 (Version 1)
Quarter: 2019Q3

REPORT INFORMATION
  Report Type: Spontaneous
  Country: US (occurrence: US)
  Receive Date: 20190525
  Receipt Date: 20190525
  Transmission Date: 20191004
  Serious: Yes (Hospitalization)
  Sender: FDA-Public Use
  Company Number: None

PATIENT
  Age: 73 Year
  Sex: Female
  Weight: 50.9 kg

DRUGS (3)
  1. CARBOPLATIN. [Suspect]
     Active Substance: CARBOPLATIN
     Dates: end: 20190426
  2. TAXOL [Suspect]
     Active Substance: PACLITAXEL
     Dates: end: 20190426
  3. CISPLATIN. [Suspect]
     Active Substance: CISPLATIN
     Dates: end: 20190221

REACTIONS (3)
  - Abdominal discomfort [None]
  - Diarrhoea [None]
  - Enteritis [None]

NARRATIVE: CASE EVENT DATE: 20190511
